FAERS Safety Report 7044040-5 (Version None)
Quarter: 2010Q4

REPORT INFORMATION
  Report Type: 
  Country: None (occurrence: None)
  Receive Date: 20101013
  Receipt Date: 20101013
  Transmission Date: 20110411
  Serious: Yes (Other)
  Sender: FDA-Public Use
  Company Number: None

PATIENT
  Sex: Female

DRUGS (1)
  1. LEFLUNOMIDE [Suspect]
     Indication: POLYMYOSITIS
     Dosage: 20 MG 1 TABLET DAILY BY MOUTH, ABOUT 1 MONTH
     Route: 048

REACTIONS (2)
  - HAIR COLOUR CHANGES [None]
  - SKIN DISCOLOURATION [None]
